FAERS Safety Report 8771882 (Version 3)
Quarter: 2012Q4

REPORT INFORMATION
  Report Type: Report from Study
  Country: JP (occurrence: JP)
  Receive Date: 20120905
  Receipt Date: 20121109
  Transmission Date: 20130627
  Serious: Yes (Death)
  Sender: FDA-Public Use
  Company Number: JP-ROCHE-1116177

PATIENT
  Age: 74 Year
  Sex: Male
  Weight: 45 kg

DRUGS (6)
  1. METHOXY POLYETHYLENE GLYCOL-EPOETIN BETA [Suspect]
     Indication: NEPHROGENIC ANAEMIA
     Route: 042
     Dates: start: 20110808, end: 20120224
  2. CARDENALIN [Concomitant]
     Indication: HYPERTENSION
     Route: 048
     Dates: start: 20120224, end: 20120305
  3. CALTAN [Concomitant]
     Route: 048
     Dates: end: 20120305
  4. ARTIST [Concomitant]
     Indication: HYPERTENSION
     Route: 048
     Dates: start: 20120224, end: 20120305
  5. SELBEX [Concomitant]
     Route: 048
     Dates: end: 20120305
  6. NITRODERM TTS [Concomitant]
     Indication: ARRHYTHMIA
     Route: 062
     Dates: start: 20120224, end: 20120305

REACTIONS (1)
  - Cardiac failure [Fatal]
